FAERS Safety Report 15762182 (Version 4)
Quarter: 2019Q3

REPORT INFORMATION
  Report Type: Report from Study
  Country: JP (occurrence: JP)
  Receive Date: 20181226
  Receipt Date: 20190806
  Transmission Date: 20191004
  Serious: Yes (Other)
  Sender: FDA-Public Use
  Company Number: JP-BRISTOL-MYERS SQUIBB COMPANY-BMS-2018-119488

PATIENT
  Age: 19 Year
  Sex: Female
  Weight: 44.5 kg

DRUGS (18)
  1. MONTELUKAST [MONTELUKAST SODIUM] [Concomitant]
     Indication: ADVERSE EVENT
     Dosage: 10 MG, QD
     Route: 048
     Dates: start: 20180509
  2. METOLATE [Concomitant]
     Active Substance: METHOTREXATE
     Indication: JUVENILE IDIOPATHIC ARTHRITIS
     Dosage: 12 MILLIGRAM, QWK
     Route: 048
     Dates: start: 20130822, end: 20140929
  3. NABOAL [DICLOFENAC SODIUM] [Concomitant]
     Indication: JUVENILE IDIOPATHIC ARTHRITIS
     Dosage: UNK
     Route: 062
  4. SELBEX [Concomitant]
     Active Substance: TEPRENONE
     Indication: PROPHYLAXIS
     Dosage: 100 MILLIGRAM, QD
     Route: 048
  5. NAIXAN [NAPROXEN] [Concomitant]
     Active Substance: NAPROXEN
     Indication: JUVENILE IDIOPATHIC ARTHRITIS
     Dosage: 400 MILLIGRAM, QD
     Route: 048
     Dates: end: 20180410
  6. METOLATE [Concomitant]
     Active Substance: METHOTREXATE
     Indication: PRODUCT USED FOR UNKNOWN INDICATION
     Dosage: 8 MILLIGRAM, QWK
     Route: 048
     Dates: start: 20140930, end: 20180612
  7. MOBIC [Concomitant]
     Active Substance: MELOXICAM
     Indication: JUVENILE IDIOPATHIC ARTHRITIS
     Dosage: 10 MILLIGRAM, QD
     Route: 048
     Dates: start: 20180411
  8. DEXALTIN [Concomitant]
     Active Substance: DEXAMETHASONE
     Indication: STOMATITIS
     Route: 065
  9. ABATACEPT [Suspect]
     Active Substance: ABATACEPT
     Indication: JUVENILE IDIOPATHIC ARTHRITIS
     Dosage: 10 MG/KG, UNK
     Route: 041
     Dates: start: 20180307
  10. INDOMETACIN [Concomitant]
     Active Substance: INDOMETHACIN
     Indication: JUVENILE IDIOPATHIC ARTHRITIS
     Dosage: UNK
     Route: 062
  11. COLCHICINE. [Concomitant]
     Active Substance: COLCHICINE
     Indication: STOMATITIS
     Route: 065
  12. FOLIAMIN [Concomitant]
     Active Substance: FOLIC ACID
     Indication: PROPHYLAXIS
     Dosage: 5 MILLIGRAM, QD
     Route: 048
  13. COLCHICINE. [Concomitant]
     Active Substance: COLCHICINE
     Indication: ADVERSE EVENT
     Dosage: 1 MILLIGRAM, QD
     Route: 048
     Dates: start: 20180307
  14. CLARITIN [Concomitant]
     Active Substance: LORATADINE
     Indication: ADVERSE EVENT
     Dosage: 10 MILLIGRAM, QD
     Route: 048
  15. CLARITIN [Concomitant]
     Active Substance: LORATADINE
     Indication: RHINITIS ALLERGIC
     Route: 065
  16. METOLATE [Concomitant]
     Active Substance: METHOTREXATE
     Indication: PRODUCT USED FOR UNKNOWN INDICATION
     Dosage: 6 MILLIGRAM, QWK
     Route: 048
     Dates: start: 20180613
  17. DEXALTIN [Concomitant]
     Active Substance: DEXAMETHASONE
     Indication: ADVERSE EVENT
     Dosage: UNK
     Route: 061
  18. MONTELUKAST [MONTELUKAST SODIUM] [Concomitant]
     Indication: ASTHMA
     Route: 065

REACTIONS (1)
  - Enteritis infectious [Recovered/Resolved]

NARRATIVE: CASE EVENT DATE: 20180530
